FAERS Safety Report 17529936 (Version 1)
Quarter: 2020Q1

REPORT INFORMATION
  Report Type: Spontaneous
  Country: FR (occurrence: FR)
  Receive Date: 20200311
  Receipt Date: 20200311
  Transmission Date: 20200409
  Serious: Yes (Hospitalization)
  Sender: FDA-Public Use
  Company Number: FR-MYLANLABS-2020M1025884

PATIENT
  Age: 71 Year
  Sex: Female

DRUGS (1)
  1. CANDESARTAN. [Suspect]
     Active Substance: CANDESARTAN
     Indication: ESSENTIAL HYPERTENSION
     Dosage: 8 MILLIGRAM, QD
     Route: 048
     Dates: end: 20191225

REACTIONS (2)
  - Acute kidney injury [Recovering/Resolving]
  - Hyperkalaemia [Recovered/Resolved]

NARRATIVE: CASE EVENT DATE: 20191225
